FAERS Safety Report 7347338-6 (Version None)
Quarter: 2011Q1

REPORT INFORMATION
  Report Type: 
  Country: None (occurrence: None)
  Receive Date: 20110311
  Receipt Date: 20110308
  Transmission Date: 20110831
  Serious: Yes (Death, Hospitalization)
  Sender: FDA-Public Use
  Company Number: DE-ROCHE-761257

PATIENT
  Sex: Female
  Weight: 81 kg

DRUGS (11)
  1. PACLITAXEL [Suspect]
     Dosage: LAST DOSE PRIOR TO SAE: 11 FEB 2011. THERAPY PERMANANTLY DISCONTINUED. FORM: VIALS.
     Route: 042
     Dates: start: 20110204, end: 20110214
  2. TORASEMIDE [Concomitant]
     Dates: start: 20101202
  3. DILTIAZEM [Concomitant]
     Dates: start: 20101202
  4. PANTOPRAZOL [Concomitant]
     Dates: start: 20101202
  5. ORFIRIL [Concomitant]
     Dosage: TDD: 5-0-18
     Dates: start: 20101202
  6. QUINAPRIL HCL [Concomitant]
     Dosage: TDD: 20/12.5
     Dates: start: 20101202
  7. LANTUS [Concomitant]
     Dosage: TDD: 10 IE
     Dates: start: 20101214
  8. CAPECITABINE [Suspect]
     Dosage: PERMANENTLY DISCONTINUED 14 FEB 2011. LAST DOSE PRIOR TO SAE 14 FEB 2011, ROUTE: ORAL BID
     Route: 048
     Dates: start: 20110204, end: 20110214
  9. BEVACIZUMAB [Suspect]
     Dosage: PERMANENTLY DISCONTINUED. FORM: VIALS,LAST DOSE PRIOR TO SAE: 4 FEB 2011
     Route: 042
     Dates: start: 20110204, end: 20110214
  10. FORTECORTIN [Concomitant]
     Dates: start: 20101202
  11. INSUMAN RAPID [Concomitant]
     Dates: start: 20110212

REACTIONS (1)
  - SYNCOPE [None]
